FAERS Safety Report 19423670 (Version 1)
Quarter: 2021Q2

REPORT INFORMATION
  Report Type: Report from Study
  Country: CA (occurrence: CA)
  Receive Date: 20210616
  Receipt Date: 20210616
  Transmission Date: 20210717
  Serious: Yes (Disabling)
  Sender: FDA-Public Use
  Company Number: CA-JNJFOC-20210618920

PATIENT
  Age: 58 Year
  Sex: Female
  Weight: 145 kg

DRUGS (2)
  1. STELARA [Suspect]
     Active Substance: USTEKINUMAB
     Indication: CROHN^S DISEASE
     Route: 042
     Dates: start: 20210413
  2. STELARA [Suspect]
     Active Substance: USTEKINUMAB
     Dosage: ON 08?JUN?2021, THE PATIENT RECEIVED 2ND INJECTION OF 90 MG
     Route: 058
     Dates: start: 20210608

REACTIONS (3)
  - Diarrhoea [Not Recovered/Not Resolved]
  - Peripheral swelling [Not Recovered/Not Resolved]
  - Headache [Not Recovered/Not Resolved]

NARRATIVE: CASE EVENT DATE: 20210416
